FAERS Safety Report 5692971-0 (Version None)
Quarter: 2008Q2

REPORT INFORMATION
  Report Type: 
  Country: None (occurrence: None)
  Receive Date: 20080402
  Receipt Date: 20080402
  Transmission Date: 20081010
  Serious: Yes (Hospitalization)
  Sender: FDA-Public Use
  Company Number: None

PATIENT
  Age: 37 Year
  Sex: Female
  Weight: 55.7924 kg

DRUGS (2)
  1. TOPIRAMATE [Suspect]
     Indication: MIGRAINE
     Dosage: 50MG 2X DAILY ORAL
     Route: 048
     Dates: start: 20071215, end: 20080312
  2. NORTRIPTYLINE HCL [Concomitant]

REACTIONS (9)
  - ALOPECIA [None]
  - CYANOSIS [None]
  - FATIGUE [None]
  - HEART RATE IRREGULAR [None]
  - HYPOTENSION [None]
  - MENSTRUAL DISORDER [None]
  - METABOLIC ACIDOSIS [None]
  - RESPIRATORY DISTRESS [None]
  - WEIGHT DECREASED [None]
